FAERS Safety Report 4365267-7 (Version None)
Quarter: 2004Q2

REPORT INFORMATION
  Report Type: 
  Country: None (occurrence: None)
  Receive Date: 20040521
  Receipt Date: 20040507
  Transmission Date: 20050107
  Serious: Yes (Death)
  Sender: FDA-Public Use
  Company Number: F04200400137

PATIENT
  Age: 72 Year
  Sex: Female

DRUGS (4)
  1. ARIXTRA [Suspect]
     Indication: KNEE ARTHROPLASTY
     Dosage: 2.5 MG OD SUBCUTANEOUS
     Route: 058
     Dates: start: 20030108, end: 20030114
  2. ARIXTRA [Suspect]
     Indication: THROMBOSIS PROPHYLAXIS
     Dosage: 2.5 MG OD SUBCUTANEOUS
     Route: 058
     Dates: start: 20030108, end: 20030114
  3. LMWH (HEPARIN-FRACTION) [Concomitant]
  4. ORAL ANTICOAGULATIVE DRUG [Concomitant]

REACTIONS (1)
  - CEREBRAL HAEMORRHAGE [None]
